FAERS Safety Report 21672784 (Version 1)
Quarter: 2022Q4

REPORT INFORMATION
  Report Type: Spontaneous
  Country: US (occurrence: None)
  Receive Date: 20221201
  Receipt Date: 20221201
  Transmission Date: 20230113
  Serious: No
  Sender: FDA-Public Use
  Company Number: None

PATIENT
  Sex: Female

DRUGS (1)
  1. LUPRON DEPOT [Suspect]
     Active Substance: LEUPROLIDE ACETATE
     Dosage: OTHER FREQUENCY : OTHER;?
     Route: 030

REACTIONS (4)
  - Therapy cessation [None]
  - Biopsy [None]
  - Procedural complication [None]
  - Surgery [None]
